FAERS Safety Report 12332392 (Version 1)
Quarter: 2016Q2

REPORT INFORMATION
  Report Type: Spontaneous
  Country: US (occurrence: US)
  Receive Date: 20160504
  Receipt Date: 20160504
  Transmission Date: 20160815
  Serious: No
  Sender: FDA-Public Use
  Company Number: US-ROCHE-1673377

PATIENT
  Sex: Male

DRUGS (15)
  1. ESBRIET [Suspect]
     Active Substance: PIRFENIDONE
     Indication: IDIOPATHIC PULMONARY FIBROSIS
     Route: 048
     Dates: start: 20151002
  2. TRAZODONE [Concomitant]
     Active Substance: TRAZODONE HYDROCHLORIDE
  3. TAMSULOSIN [Concomitant]
     Active Substance: TAMSULOSIN
  4. BUTALBITAL [Concomitant]
     Active Substance: BUTALBITAL
  5. ASPIRIN. [Concomitant]
     Active Substance: ASPIRIN
  6. TYLENOL [Concomitant]
     Active Substance: ACETAMINOPHEN
  7. SIMVASTATIN. [Concomitant]
     Active Substance: SIMVASTATIN
  8. PAROXETINE. [Concomitant]
     Active Substance: PAROXETINE
  9. SPIRONOLACTONE. [Concomitant]
     Active Substance: SPIRONOLACTONE
  10. PREVACID [Concomitant]
     Active Substance: LANSOPRAZOLE
  11. TUMS [Concomitant]
     Active Substance: CALCIUM CARBONATE
  12. LANSOPRAZOLE. [Concomitant]
     Active Substance: LANSOPRAZOLE
  13. NIFEDIPINE. [Concomitant]
     Active Substance: NIFEDIPINE
  14. LASIX [Concomitant]
     Active Substance: FUROSEMIDE
  15. CARVEDILOL. [Concomitant]
     Active Substance: CARVEDILOL

REACTIONS (3)
  - Gastrooesophageal reflux disease [Unknown]
  - Decreased appetite [Unknown]
  - Dyspepsia [Unknown]
